FAERS Safety Report 4821368-8 (Version None)
Quarter: 2005Q4

REPORT INFORMATION
  Report Type: 
  Country: None (occurrence: None)
  Receive Date: 20051107
  Receipt Date: 20051026
  Transmission Date: 20060501
  Serious: Yes (Death, Hospitalization)
  Sender: FDA-Public Use
  Company Number: US-BRISTOL-MYERS SQUIBB COMPANY-13158001

PATIENT
  Age: 58 Year
  Sex: Male
  Weight: 68 kg

DRUGS (5)
  1. COUMADIN [Suspect]
     Indication: THROMBOSIS
     Dates: start: 20050801, end: 20050908
  2. ACYCLOVIR [Concomitant]
     Dates: start: 20050401
  3. FOLIC ACID [Concomitant]
     Dates: start: 20050501
  4. MAGNESIUM [Concomitant]
     Dates: start: 20050501
  5. MULTI-VITAMIN [Concomitant]
     Dates: start: 20050401

REACTIONS (6)
  - ACUTE MYELOID LEUKAEMIA [None]
  - ACUTE MYELOID LEUKAEMIA RECURRENT [None]
  - MUCOSAL INFLAMMATION [None]
  - PLATELET COUNT DECREASED [None]
  - RENAL FAILURE [None]
  - SEPSIS [None]
